FAERS Safety Report 11360942 (Version 1)
Quarter: 2015Q3

REPORT INFORMATION
  Report Type: Spontaneous
  Country: VN (occurrence: VN)
  Receive Date: 20150810
  Receipt Date: 20150810
  Transmission Date: 20151125
  Serious: Yes (Death)
  Sender: FDA-Public Use
  Company Number: VN-009507513-1508VNM002176

PATIENT
  Age: 85 Year
  Sex: Male

DRUGS (1)
  1. COZAAR [Suspect]
     Active Substance: LOSARTAN POTASSIUM
     Dosage: 50 MG ONE TABLET, ONCE A DAY
     Route: 048
     Dates: start: 20110514, end: 20150701

REACTIONS (1)
  - Death [Fatal]

NARRATIVE: CASE EVENT DATE: 20150701
